FAERS Safety Report 22141250 (Version 1)
Quarter: 2023Q1

REPORT INFORMATION
  Report Type: Spontaneous
  Country: US (occurrence: US)
  Receive Date: 20230327
  Receipt Date: 20230327
  Transmission Date: 20230418
  Serious: No
  Sender: FDA-Public Use
  Company Number: US-SANOFI-01545709

PATIENT
  Sex: Female

DRUGS (1)
  1. SELSUN BLUE MOISTURIZING [Suspect]
     Active Substance: SELENIUM SULFIDE
     Indication: Seborrhoeic dermatitis
     Dosage: UNK

REACTIONS (2)
  - Pruritus [Unknown]
  - Therapeutic response decreased [Unknown]
